FAERS Safety Report 10210591 (Version 1)
Quarter: 2014Q2

REPORT INFORMATION
  Report Type: Spontaneous
  Country: JP (occurrence: JP)
  Receive Date: 20140602
  Receipt Date: 20140602
  Transmission Date: 20141212
  Serious: Yes (Hospitalization)
  Sender: FDA-Public Use
  Company Number: JP-JNJFOC-20140519123

PATIENT
  Age: 65 Year
  Sex: Male

DRUGS (3)
  1. SOVRIAD [Suspect]
     Indication: CHRONIC HEPATITIS C
     Route: 048
     Dates: end: 201404
  2. PEGINTERFERON ALFA  2A [Suspect]
     Indication: CHRONIC HEPATITIS C
     Route: 058
     Dates: end: 201404
  3. RIBAVIRIN [Suspect]
     Indication: CHRONIC HEPATITIS C
     Dosage: PERORAL MEDICINE
     Route: 048
     Dates: end: 201404

REACTIONS (1)
  - Pneumonia bacterial [Recovered/Resolved]
